FAERS Safety Report 6283962-X (Version None)
Quarter: 2009Q3

REPORT INFORMATION
  Report Type: 
  Country: None (occurrence: None)
  Receive Date: 20090722
  Receipt Date: 20090713
  Transmission Date: 20100115
  Serious: Yes (Death, Hospitalization)
  Sender: FDA-Public Use
  Company Number: 2009005999

PATIENT
  Age: 79 Year
  Sex: Male

DRUGS (1)
  1. TREANDA [Suspect]
     Indication: NON-HODGKIN'S LYMPHOMA
     Dosage: (90 MG/M2, DAYS 1 AND 8 PER CYCLE), INTRAVENOUS
     Route: 042
     Dates: start: 20090201, end: 20090401

REACTIONS (5)
  - DYSPHAGIA [None]
  - ENCEPHALOPATHY [None]
  - MUSCULAR WEAKNESS [None]
  - PARAPARESIS [None]
  - SPEECH DISORDER [None]
